FAERS Safety Report 25929201 (Version 1)
Quarter: 2025Q4

REPORT INFORMATION
  Report Type: Spontaneous
  Country: EU (occurrence: EU)
  Receive Date: 20251016
  Receipt Date: 20251016
  Transmission Date: 20260117
  Serious: Yes (Hospitalization)
  Sender: RANBAXY
  Company Number: EU-AFSSAPS-GR2025000960

PATIENT
  Age: 59 Year
  Sex: Male
  Weight: 112.5 kg

DRUGS (1)
  1. VENLAFAXINE [Suspect]
     Active Substance: VENLAFAXINE HYDROCHLORIDE
     Indication: Product used for unknown indication
     Dosage: 20 DOSAGE FORM, IN TOTAL, 20 CP X 75 MG
     Route: 048
     Dates: start: 20250610, end: 20250610

REACTIONS (3)
  - Hypotension [Recovering/Resolving]
  - Depressed level of consciousness [Recovering/Resolving]
  - Poisoning deliberate [Recovering/Resolving]

NARRATIVE: CASE EVENT DATE: 20250610
